FAERS Safety Report 20429627 (Version 1)
Quarter: 2022Q1

REPORT INFORMATION
  Report Type: Report from Study
  Country: FR (occurrence: FR)
  Receive Date: 20220204
  Receipt Date: 20220204
  Transmission Date: 20220423
  Serious: Yes (Other)
  Sender: FDA-Public Use
  Company Number: FR-SERVIER-S19007604

PATIENT

DRUGS (26)
  1. PEGASPARGASE [Suspect]
     Active Substance: PEGASPARGASE
     Indication: Acute lymphocytic leukaemia
     Dosage: 3425 IU
     Route: 042
     Dates: start: 20181206
  2. PEGASPARGASE [Suspect]
     Active Substance: PEGASPARGASE
     Dosage: 3600 IU
     Route: 042
     Dates: start: 20190620
  3. VINCRISTINE [Suspect]
     Active Substance: VINCRISTINE
     Indication: Acute lymphocytic leukaemia
     Dosage: UNK
     Route: 042
  4. VINCRISTINE [Suspect]
     Active Substance: VINCRISTINE
     Dosage: 2 MG ON D1, 8, 15 OF EACH CYCLE
     Route: 042
     Dates: start: 20190617
  5. DAUNORUBICIN [Suspect]
     Active Substance: DAUNORUBICIN
     Indication: Acute lymphocytic leukaemia
     Dosage: UNK
     Route: 042
  6. DAUNORUBICIN [Suspect]
     Active Substance: DAUNORUBICIN
     Dosage: 43.2 MG ON D1, 8 AND 15 OF EACH CYCLE
     Route: 042
     Dates: start: 20190617
  7. METHOTREXATE [Suspect]
     Active Substance: METHOTREXATE
     Indication: Acute lymphocytic leukaemia
     Dosage: UNK
     Route: 037
  8. METHOTREXATE [Suspect]
     Active Substance: METHOTREXATE
     Dosage: 12 MG
     Route: 037
     Dates: start: 20190620
  9. CYTARABINE [Suspect]
     Active Substance: CYTARABINE
     Indication: Acute lymphocytic leukaemia
     Dosage: 30 MG
     Route: 037
     Dates: start: 20190620
  10. HYDROCORTISONE [Suspect]
     Active Substance: HYDROCORTISONE
     Indication: Acute lymphocytic leukaemia
     Dosage: 15 MG, D4
     Route: 037
     Dates: start: 20190620
  11. DEXAMETHASONE [Suspect]
     Active Substance: DEXAMETHASONE
     Indication: Acute lymphocytic leukaemia
     Dosage: 15 MG, D1 TO D22
     Route: 048
     Dates: start: 20190617
  12. GABAPENTIN [Suspect]
     Active Substance: GABAPENTIN
     Indication: Epilepsy
     Dosage: 7 UNKNOWN, QD
     Route: 048
     Dates: start: 20190619
  13. KEPPRA [Suspect]
     Active Substance: LEVETIRACETAM
     Indication: Epilepsy
     Dosage: 2 UNKNOWN, QD
     Route: 048
     Dates: start: 20190619
  14. TN UNSPECIFIED [Concomitant]
     Indication: Laxative supportive care
     Dosage: 160 G, QD
     Route: 048
     Dates: start: 20181231
  15. TN UNSPECIFIED [Concomitant]
     Dosage: 1 UNKNOWN
     Route: 048
     Dates: start: 20190620
  16. TN UNSPECIFIED [Concomitant]
     Indication: Antifungal prophylaxis
     Dosage: 4 UNKNOWN, QD
     Route: 048
     Dates: start: 20181231
  17. TN UNSPECIFIED [Concomitant]
     Dosage: 12 ML, QD
     Route: 048
     Dates: start: 20190619
  18. TN UNSPECIFIED [Concomitant]
     Indication: Infection
     Dosage: 4 UNKNOWN, QD
     Route: 048
     Dates: start: 20181231
  19. BACTRIM [Concomitant]
     Active Substance: SULFAMETHOXAZOLE\TRIMETHOPRIM
     Indication: Chemical poisoning
     Dosage: 1 UNKNOWN, QD
     Route: 048
     Dates: start: 20181231
  20. MERCAPTOPURINE [Concomitant]
     Active Substance: MERCAPTOPURINE
     Indication: Neoplasm malignant
     Dosage: 75 MG, QD
     Route: 048
     Dates: start: 20181231
  21. TN UNSPECIFIED [Concomitant]
     Indication: Mental disorder
     Dosage: 1 UNKNOWN, QD
     Route: 048
     Dates: start: 20190619
  22. TN UNSPECIFIED [Concomitant]
     Indication: Epilepsy
     Dosage: 200 MG, QD
     Route: 048
     Dates: start: 20190619
  23. Loxen [Concomitant]
     Indication: Hypertension
     Dosage: 1 UNKNOWN, QD
     Route: 048
     Dates: start: 20190619
  24. INNOHEP [Concomitant]
     Active Substance: TINZAPARIN SODIUM
     Indication: Thrombosis
     Dosage: 9000 IU, QD
     Route: 058
     Dates: start: 20190619
  25. TN UNSPECIFIED [Concomitant]
     Indication: Antibiotic prophylaxis
     Dosage: 1 UNKNOWN, QD
     Route: 048
     Dates: start: 20190621
  26. TN UNSPECIFIED [Concomitant]
     Indication: Acidosis
     Dosage: 20 MG, QD
     Route: 048
     Dates: start: 20190626

REACTIONS (3)
  - Hepatic encephalopathy [Recovered/Resolved]
  - Hypofibrinogenaemia [Recovered/Resolved]
  - Hyperbilirubinaemia [Recovered/Resolved]

NARRATIVE: CASE EVENT DATE: 20190706
